FAERS Safety Report 18092333 (Version 1)
Quarter: 2020Q3

REPORT INFORMATION
  Report Type: Spontaneous
  Country: US (occurrence: US)
  Receive Date: 20200729
  Receipt Date: 20200729
  Transmission Date: 20201103
  Serious: No
  Sender: FDA-Public Use
  Company Number: None

PATIENT
  Age: 38 Year
  Sex: Female

DRUGS (1)
  1. SCENTSATIONALS HAND SANITIZER ANTISEPTIC NON STERILE WITH ALOE AND LEMON [Suspect]
     Active Substance: ALCOHOL
     Indication: ANTIBIOTIC PROPHYLAXIS
     Dates: start: 20200720, end: 20200728

REACTIONS (1)
  - Urticaria [None]

NARRATIVE: CASE EVENT DATE: 20200727
